FAERS Safety Report 9048933 (Version 1)
Quarter: 2013Q1

REPORT INFORMATION
  Report Type: Spontaneous
  Country: US (occurrence: None)
  Receive Date: 20130116
  Receipt Date: 20130116
  Transmission Date: 20140127
  Serious: Yes (Other)
  Sender: FDA-Public Use
  Company Number: 1549279

PATIENT
  Age: 70 Year
  Sex: Female
  Weight: 47.27 kg

DRUGS (3)
  1. DEXTROSE [Suspect]
     Indication: COLON CANCER
     Dosage: 500  ML,  UNKNOWN,  UNKNOWN,  UNKNOWN?02/06/2012  -  02/06/2012
     Dates: start: 20120206, end: 20120206
  2. LEUCOVORIN [Suspect]
     Indication: COLON CANCER
     Dosage: 576  MG, UNKNOWN,  UNKNOWN,  UNKNOWN?02/06/2012  -  02/06/2012
     Dates: start: 20120206, end: 20120206
  3. (OXALIPLATIN) [Suspect]
     Indication: COLON CANCER
     Dosage: 122  MG,  UNKNOWN,  UNKNOWN,  UNKNOWN?02/06/2012  -  02/06/2012
     Dates: start: 20120206, end: 20120206

REACTIONS (3)
  - Erythema [None]
  - Rash generalised [None]
  - Infusion related reaction [None]
